FAERS Safety Report 18656983 (Version 1)
Quarter: 2020Q4

REPORT INFORMATION
  Report Type: Spontaneous
  Country: GB (occurrence: GB)
  Receive Date: 20201223
  Receipt Date: 20201223
  Transmission Date: 20210114
  Serious: Yes (Other)
  Sender: FDA-Public Use
  Company Number: NVSC2020GB335823

PATIENT
  Sex: Female

DRUGS (4)
  1. ABATACEPT [Suspect]
     Active Substance: ABATACEPT
     Indication: RHEUMATOID ARTHRITIS
     Dosage: 125 MG, QW (SOLUTION FOR INJECTION IN PRE FILLED PEN)
     Route: 058
     Dates: start: 20170817
  2. FOLIC ACID. [Concomitant]
     Active Substance: FOLIC ACID
     Indication: PRODUCT USED FOR UNKNOWN INDICATION
     Dosage: 5 MG, QD (EVERYDAY EXCEPT THE DAY SHE TAKES METHOTREXATE)
     Route: 048
  3. PARACETAMOL [Concomitant]
     Active Substance: ACETAMINOPHEN
     Indication: PAIN
     Dosage: UNK, QD (EVERYDAY, PRN)
     Route: 048
  4. METHOTREXATE. [Suspect]
     Active Substance: METHOTREXATE
     Indication: RHEUMATOID ARTHRITIS
     Dosage: 7.5 MG, QW
     Route: 048
     Dates: start: 2013

REACTIONS (7)
  - Viral infection [Unknown]
  - Lower respiratory tract infection [Unknown]
  - Localised infection [Unknown]
  - Skin ulcer [Not Recovered/Not Resolved]
  - Limb discomfort [Unknown]
  - Arthropod bite [Recovered/Resolved]
  - Wound [Unknown]

NARRATIVE: CASE EVENT DATE: 202004
